FAERS Safety Report 5768032-9 (Version None)
Quarter: 2008Q2

REPORT INFORMATION
  Report Type: 
  Country: None (occurrence: None)
  Receive Date: 20080601
  Receipt Date: 20080314
  Transmission Date: 20081010
  Serious: No
  Sender: FDA-Public Use
  Company Number: US200803002572

PATIENT
  Age: 58 Year
  Sex: Female
  Weight: 103.9 kg

DRUGS (7)
  1. BYETTA [Suspect]
     Indication: GLUCOSE TOLERANCE IMPAIRED
     Dosage: 5 UG, 2/D, SUBCUTEANOUS; 10 UG, 2/D, SUBCUTANEOUS
     Route: 058
     Dates: start: 20080204, end: 20080302
  2. BYETTA [Suspect]
     Indication: GLUCOSE TOLERANCE IMPAIRED
     Dosage: 5 UG, 2/D, SUBCUTEANOUS; 10 UG, 2/D, SUBCUTANEOUS
     Route: 058
     Dates: start: 20080303
  3. METFORMIN HCL [Concomitant]
  4. SYNTHROID [Concomitant]
  5. ALLEGRA [Concomitant]
  6. ZYRTEC [Concomitant]
  7. CRESTOR [Concomitant]

REACTIONS (9)
  - BLOOD GLUCOSE DECREASED [None]
  - BREAST PAIN [None]
  - EARLY SATIETY [None]
  - FEELING JITTERY [None]
  - HEADACHE [None]
  - NAUSEA [None]
  - TREMOR [None]
  - URINE ODOUR ABNORMAL [None]
  - WEIGHT DECREASED [None]
